FAERS Safety Report 8853301 (Version 1)
Quarter: 2012Q4

REPORT INFORMATION
  Report Type: 
  Country: US (occurrence: US)
  Receive Date: 20121022
  Receipt Date: 20121022
  Transmission Date: 20130627
  Serious: No
  Sender: FDA-Public Use
  Company Number: US-009507513-1210USA007453

PATIENT
  Age: 37 Year
  Sex: Female

DRUGS (1)
  1. IMPLANON [Suspect]
     Dosage: every 3 years
     Route: 059
     Dates: start: 20091002

REACTIONS (2)
  - Incorrect drug administration duration [Unknown]
  - Expired drug administered [Unknown]
